FAERS Safety Report 7528707-8 (Version None)
Quarter: 2011Q2

REPORT INFORMATION
  Report Type: 
  Country: None (occurrence: None)
  Receive Date: 20110607
  Receipt Date: 20110531
  Transmission Date: 20111010
  Serious: Yes (Death)
  Sender: FDA-Public Use
  Company Number: SK-PFIZER INC-2011117159

PATIENT
  Age: 24 Year
  Sex: Male

DRUGS (3)
  1. ANIDULAFUNGIN [Suspect]
     Indication: FUNGAL SEPSIS
  2. INSULIN [Concomitant]
     Dosage: UNK
  3. ANIDULAFUNGIN [Suspect]
     Indication: CANDIDIASIS
     Dosage: UNK
     Dates: start: 20100515

REACTIONS (1)
  - DEATH [None]
